FAERS Safety Report 7233084-6 (Version None)
Quarter: 2011Q1

REPORT INFORMATION
  Report Type: 
  Country: None (occurrence: None)
  Receive Date: 20110119
  Receipt Date: 20110106
  Transmission Date: 20110831
  Serious: Yes (Other)
  Sender: FDA-Public Use
  Company Number: IN-PURDUE-GBR-2011-0007576

PATIENT
  Age: 80 Year
  Sex: Male

DRUGS (8)
  1. MORPHINE SULFATE [Interacting]
     Dosage: 15 MG, Q4H
  2. MORPHINE SULFATE [Interacting]
     Dosage: 10 MG, UNK
  3. AMITRIPTYLINE [Interacting]
     Indication: PRODUCT USED FOR UNKNOWN INDICATION
     Dosage: 25 MG, NOCTE
  4. RANITIDINE [Interacting]
     Indication: PAIN
     Dosage: 150 MG, Q12H
  5. MORPHINE SULFATE [Interacting]
     Dosage: 30 MG, Q4H
  6. AMITRIPTYLINE [Interacting]
     Dosage: 25 MG, BID
  7. MORPHINE SULFATE [Interacting]
     Dosage: 20 MG, Q4H
  8. MORPHINE SULFATE [Suspect]
     Indication: PAIN
     Dosage: 5 MG, Q4H

REACTIONS (5)
  - DRUG INTERACTION [None]
  - RESPIRATORY DEPRESSION [None]
  - INADEQUATE ANALGESIA [None]
  - OVERDOSE [None]
  - ADVANCED SLEEP PHASE [None]
